FAERS Safety Report 18345743 (Version 1)
Quarter: 2020Q4

REPORT INFORMATION
  Report Type: Spontaneous
  Country: US (occurrence: US)
  Receive Date: 20201005
  Receipt Date: 20201005
  Transmission Date: 20210114
  Serious: No
  Sender: FDA-Public Use
  Company Number: US-EMD SERONO-9185550

PATIENT
  Age: 68 Year
  Sex: Female

DRUGS (3)
  1. AVELUMAB [Suspect]
     Active Substance: AVELUMAB
     Indication: TRANSITIONAL CELL CARCINOMA
     Dates: start: 202008
  2. BENADRYL [Concomitant]
     Active Substance: DIPHENHYDRAMINE HYDROCHLORIDE
     Indication: PREMEDICATION
     Dates: start: 202008
  3. BENADRYL [Concomitant]
     Active Substance: DIPHENHYDRAMINE HYDROCHLORIDE
     Dates: start: 202009

REACTIONS (1)
  - Infusion related reaction [Recovering/Resolving]

NARRATIVE: CASE EVENT DATE: 202008
